FAERS Safety Report 9052383 (Version 1)
Quarter: 2013Q1

REPORT INFORMATION
  Report Type: Spontaneous
  Country: FI (occurrence: FI)
  Receive Date: 20130207
  Receipt Date: 20130207
  Transmission Date: 20140127
  Serious: Yes (Death, Hospitalization, Other)
  Sender: FDA-Public Use
  Company Number: FI-ABBOTT-12P-055-0989430-00

PATIENT
  Sex: Male

DRUGS (133)
  1. DUODOPA [Suspect]
     Indication: PARKINSON^S DISEASE
     Dosage: 20MG/ML+5MG/ML
     Dates: start: 20080515, end: 20110805
  2. DUODOPA [Suspect]
     Dosage: 20MG/ML+5MG/ML
     Dates: start: 20090508, end: 20110427
  3. DUODOPA [Suspect]
     Dosage: 20MG/ML+5MG/ML
     Dates: start: 20100419, end: 20120223
  4. DUODOPA [Suspect]
     Dosage: 20MG/ML+5MG/ML, ACCORDING TO INSTRUCTIONS. DOSE IN OCT 2012: 6.8ML/H, 24/7
     Dates: start: 20120223
  5. CORTISONE [Concomitant]
     Indication: PRODUCT USED FOR UNKNOWN INDICATION
  6. ALFUZOSIN HCL (ALFUZOSIN HYDROCHLORID RATIOPHARM) [Concomitant]
     Indication: PRODUCT USED FOR UNKNOWN INDICATION
     Dates: start: 20081003, end: 20110427
  7. ALFUZOSIN HCL (ALFUZOSIN HYDROCHLORID RATIOPHARM) [Concomitant]
     Dates: start: 20120628
  8. AMOXICILLIN TRIHYDRATE/CLAVULANIC ACID (AMORION COMP) [Concomitant]
     Indication: PRODUCT USED FOR UNKNOWN INDICATION
     Dosage: 875/125MG
     Dates: start: 20120805, end: 20120811
  9. AMOXICILLIN TRIHYDRATE [Concomitant]
     Indication: PRODUCT USED FOR UNKNOWN INDICATION
     Dates: start: 20120816, end: 20120822
  10. LACTOBACILLUS PRODUCT [Concomitant]
     Indication: PRODUCT USED FOR UNKNOWN INDICATION
     Dates: start: 20120816, end: 20120822
  11. ARCOXIA [Concomitant]
     Indication: PRODUCT USED FOR UNKNOWN INDICATION
     Dates: start: 20090730, end: 20091201
  12. ARCOXIA [Concomitant]
     Dates: start: 20100928, end: 20120802
  13. ARCOXIA [Concomitant]
     Dates: start: 20100824, end: 20110427
  14. ARCOXIA [Concomitant]
     Dates: start: 20080918, end: 20120802
  15. ARCOXIA [Concomitant]
     Dates: start: 20080826, end: 20081121
  16. ARCOXIA [Concomitant]
     Dates: start: 20080908, end: 20080918
  17. MOXIFLOXACIN HYDROCHLORIDE [Concomitant]
     Indication: PRODUCT USED FOR UNKNOWN INDICATION
     Dates: start: 20120817, end: 20120823
  18. BETAMETHASONE VALERATE (BETNOVAT SCALP) [Concomitant]
     Indication: PRODUCT USED FOR UNKNOWN INDICATION
     Dates: start: 20080129, end: 20120802
  19. CYANOCOBALAMIN [Concomitant]
     Indication: PRODUCT USED FOR UNKNOWN INDICATION
     Dates: start: 20121003
  20. CALCIUM CARBONATE/CHOLECALCIFEROL (PULVIS) (CALCICHEW D3 FORTE LEMON) [Concomitant]
     Indication: PRODUCT USED FOR UNKNOWN INDICATION
     Dosage: 500MG/10MCG
     Dates: start: 20120802, end: 20120802
  21. CALCIUM CARBONATE/CHOLECALCIFEROL (PULVIS) (CALCICHEW D3 FORTE LEMON) [Concomitant]
     Dates: start: 20120802, end: 20121002
  22. CALCIUM CARBONATE/CHOLECALCIFEROL (PULVIS) (CALCICHEW D3 FORTE LEMON) [Concomitant]
     Dates: start: 20121002
  23. ESCITALOPRAM [Concomitant]
     Indication: PRODUCT USED FOR UNKNOWN INDICATION
     Dates: start: 20080521, end: 20081121
  24. CLOZAPINE [Concomitant]
     Indication: PRODUCT USED FOR UNKNOWN INDICATION
     Dates: start: 20110520, end: 20110527
  25. AMILORIDE HYDROCHLORIDE/HYDROCHLOROTHIAZIDE (DIUREX MITE) [Concomitant]
     Indication: PRODUCT USED FOR UNKNOWN INDICATION
     Dates: start: 20071015, end: 20100928
  26. MOMETASONE FUROATE [Concomitant]
     Indication: PRODUCT USED FOR UNKNOWN INDICATION
     Dates: start: 20110726, end: 20110801
  27. EXELON [Concomitant]
     Indication: PRODUCT USED FOR UNKNOWN INDICATION
     Dosage: UNKNOWN DOSE
     Dates: start: 20080201, end: 20110427
  28. EXELON [Concomitant]
     Dosage: 4.6MG/24H: 1+0+0
     Dates: start: 20091027, end: 20110805
  29. EXELON [Concomitant]
     Dosage: 4.6MG/24H
     Dates: start: 20080521, end: 20090730
  30. EXELON [Concomitant]
     Dosage: 4.6MG/24H
     Dates: start: 20100616, end: 20110805
  31. FINASTERIDE [Concomitant]
     Indication: PRODUCT USED FOR UNKNOWN INDICATION
     Dates: start: 20080108, end: 20100217
  32. FINASTERIDE [Concomitant]
     Dates: start: 20100217, end: 20101217
  33. FINASTERIDE [Concomitant]
     Indication: PRODUCT USED FOR UNKNOWN INDICATION
     Dates: start: 20081003, end: 20120104
  34. FINASTERIDE [Concomitant]
     Dates: start: 20120104, end: 20121002
  35. FINASTERIDE [Concomitant]
     Dates: start: 20121002
  36. FINASTERIDE [Concomitant]
     Dates: start: 20080103, end: 20081121
  37. FINASTERIDE [Concomitant]
     Indication: PRODUCT USED FOR UNKNOWN INDICATION
     Dates: start: 20101217, end: 20110427
  38. FLUPAR-VACCIN [Concomitant]
     Indication: PRODUCT USED FOR UNKNOWN INDICATION
     Dates: start: 20081125, end: 20110805
  39. FOLIC ACID [Concomitant]
     Indication: PRODUCT USED FOR UNKNOWN INDICATION
     Dates: start: 20121003
  40. CLOZAPINE [Concomitant]
     Indication: PRODUCT USED FOR UNKNOWN INDICATION
     Dates: start: 20120802, end: 20121002
  41. CLOZAPINE [Concomitant]
     Dates: start: 20121002
  42. CLOZAPINE [Concomitant]
     Dates: start: 20110527, end: 20110726
  43. CLOZAPINE [Concomitant]
     Dates: start: 20110726, end: 20110923
  44. CLOZAPINE [Concomitant]
     Dosage: TWO DOSES STATED: 2+6 AND 2+2
     Dates: start: 20111212, end: 20121002
  45. CLOZAPINE [Concomitant]
     Dates: start: 20110923, end: 20111212
  46. CLOZAPINE [Concomitant]
     Dosage: 2+2
     Dates: start: 20121002
  47. FURESIS [Concomitant]
     Indication: PRODUCT USED FOR UNKNOWN INDICATION
     Dates: start: 20120802, end: 20121002
  48. KARDOPAL [Concomitant]
     Indication: PRODUCT USED FOR UNKNOWN INDICATION
     Dosage: 200/50MG
     Dates: start: 20071210, end: 20110427
  49. KEFEXIN [Concomitant]
     Indication: PRODUCT USED FOR UNKNOWN INDICATION
     Dates: start: 20080519, end: 20080522
  50. KEFEXIN [Concomitant]
     Dates: start: 20110730, end: 20110808
  51. LACTULOSE [Concomitant]
     Indication: PRODUCT USED FOR UNKNOWN INDICATION
     Dosage: 30MLX1
     Dates: start: 20080527
  52. LYRICA [Concomitant]
     Indication: PRODUCT USED FOR UNKNOWN INDICATION
     Dates: start: 20090730, end: 20110427
  53. LYRICA [Concomitant]
     Dosage: 1-2
     Dates: start: 20091112, end: 20100928
  54. LYRICA [Concomitant]
     Dosage: 1-2
     Dates: start: 20100928, end: 20120802
  55. LYRICA [Concomitant]
     Dosage: 1-2
     Dates: start: 20120802, end: 20121002
  56. LYRICA [Concomitant]
     Dosage: 1-2
     Dates: start: 20121002
  57. MIRTAZAPIN ORION [Concomitant]
     Indication: PRODUCT USED FOR UNKNOWN INDICATION
     Dosage: 1/2X1
     Dates: start: 20090629, end: 20110427
  58. MIRTAZAPIN ORION [Concomitant]
     Dosage: 1/2X1
     Dates: start: 20100216, end: 20100928
  59. MIRTAZAPIN ORION [Concomitant]
     Dosage: 1/2X1
     Dates: start: 20100928
  60. MOVICOL [Concomitant]
     Indication: PRODUCT USED FOR UNKNOWN INDICATION
     Dates: start: 20080527, end: 20120802
  61. NEUROBION FORTE [Concomitant]
     Indication: PRODUCT USED FOR UNKNOWN INDICATION
     Dates: start: 20081121, end: 20090730
  62. NEUROBION FORTE [Concomitant]
     Dates: start: 20100222, end: 20120802
  63. OXAZEPAM [Concomitant]
     Indication: PRODUCT USED FOR UNKNOWN INDICATION
     Dosage: 3 DOSES STATED: 1+1+1+2 AND 1+1/2+2 AND 1+1+2
     Dates: start: 20080527, end: 20110427
  64. OXAZEPAM [Concomitant]
     Dates: start: 20071210, end: 20080610
  65. OXAZEPAM [Concomitant]
     Dosage: 1+1+1+2
     Dates: start: 20080610, end: 20100222
  66. OXAZEPAM [Concomitant]
     Dosage: 1X1-2
     Dates: start: 20100610, end: 20110427
  67. OXAZEPAM [Concomitant]
     Dosage: TWO DOSES STATED: 1+1+2 AND 1+1+1+2
     Dates: start: 20100222, end: 20121003
  68. OXAZEPAM [Concomitant]
     Dosage: 1+1+2
     Dates: start: 20121003
  69. OXAZEPAM [Concomitant]
     Dates: start: 20090708, end: 20110427
  70. OXAZEPAM [Concomitant]
     Dates: start: 20100614, end: 20110427
  71. OXAZEPAM [Concomitant]
     Dosage: ACCORDING TO THE INSTRUCTIONS
     Dates: start: 20080326, end: 20080626
  72. OXAZEPAM [Concomitant]
     Dosage: ACCORDING TO THE INSTRUCTIONS
     Dates: start: 20080626, end: 20110427
  73. CODEINE PHOSPHATE HEMIHYDRATE/PARACETAMOL (PANACOD) [Concomitant]
     Indication: PRODUCT USED FOR UNKNOWN INDICATION
     Dosage: 1-2 X 1-4
     Dates: start: 20080521, end: 20111127
  74. CODEINE PHOSPHATE HEMIHYDRATE/PARACETAMOL (PANACOD) [Concomitant]
     Dates: start: 20080613, end: 20110427
  75. CODEINE PHOSPHATE HEMIHYDRATE/PARACETAMOL (PANACOD) [Concomitant]
     Dates: start: 20091231, end: 20120802
  76. PARACETAMOL [Concomitant]
     Indication: PRODUCT USED FOR UNKNOWN INDICATION
     Dosage: 1-2 X 1-3
     Dates: start: 20080521, end: 20081121
  77. PARACETAMOL [Concomitant]
     Indication: PRODUCT USED FOR UNKNOWN INDICATION
     Dates: start: 20071210, end: 20110427
  78. PARACETAMOL [Concomitant]
     Indication: PRODUCT USED FOR UNKNOWN INDICATION
     Dates: start: 20090708, end: 20120802
  79. PARACETAMOL [Concomitant]
     Dosage: 1+1+1
     Dates: start: 20080812, end: 20110427
  80. PREDNISOLONE (PREDNISOLON) [Concomitant]
     Indication: PRODUCT USED FOR UNKNOWN INDICATION
     Dosage: 30MGX1 EVERY SECOND FRIDAY UNTIL CHECK-UP
     Dates: start: 20121002
  81. PREDNISOLONE (PREDNISOLON) [Concomitant]
     Dosage: EVERY OTHER MONTH UNTIL CHECK-UP
     Dates: start: 20121002
  82. PRONAXEN [Concomitant]
     Indication: PRODUCT USED FOR UNKNOWN INDICATION
     Dates: start: 20091201, end: 20120802
  83. PRONAXEN [Concomitant]
     Dates: start: 20100614, end: 20110427
  84. PRONAXEN [Concomitant]
     Dates: start: 20110316, end: 20110427
  85. PRONAXEN [Concomitant]
     Dates: start: 20080804, end: 20100322
  86. PRONAXEN [Concomitant]
     Dates: start: 20100322, end: 20110316
  87. FERRO SULFATE, DRIED (RETAFER) [Concomitant]
     Indication: PRODUCT USED FOR UNKNOWN INDICATION
     Dates: start: 20120802, end: 20121003
  88. CLONAZEPAM [Concomitant]
     Indication: PRODUCT USED FOR UNKNOWN INDICATION
     Dates: start: 20080521, end: 20090318
  89. CLONAZEPAM [Concomitant]
     Dates: start: 20091112, end: 20100222
  90. CLONAZEPAM [Concomitant]
     Dates: start: 20100222
  91. CLONAZEPAM [Concomitant]
     Dates: start: 20091030, end: 20110424
  92. CLONAZEPAM [Concomitant]
     Dates: start: 20090318, end: 20100115
  93. QUETIAPINE FUMARATE [Concomitant]
     Indication: PRODUCT USED FOR UNKNOWN INDICATION
     Dates: start: 20110527, end: 20110805
  94. QUETIAPINE FUMARATE [Concomitant]
     Dates: start: 20081029, end: 20081121
  95. QUETIAPINE FUMARATE [Concomitant]
     Dates: start: 20090729, end: 20091021
  96. QUETIAPINE FUMARATE [Concomitant]
     Dates: start: 20080527, end: 20081029
  97. QUETIAPINE FUMARATE [Concomitant]
     Dates: start: 20081121, end: 20090629
  98. QUETIAPINE FUMARATE [Concomitant]
     Dates: start: 20080303, end: 20100222
  99. CARBIDOPA MONOHYDRATE/LEVODOPA (SINEMET DEPOT) [Concomitant]
     Indication: PRODUCT USED FOR UNKNOWN INDICATION
     Dates: start: 20071015, end: 20120802
  100. CARBIDOPA MONOHYDRATE/LEVODOPA (SINEMET DEPOT) [Concomitant]
     Dates: start: 20090318, end: 20090629
  101. CARBIDOPA MONOHYDRATE/LEVODOPA (SINEMET DEPOT) [Concomitant]
     Dosage: 50MG/200MG: 1/2X1-3
     Dates: start: 20100923, end: 20101018
  102. CARBIDOPA MONOHYDRATE/LEVODOPA (SINEMET DEPOT) [Concomitant]
     Dosage: 50MG/200MG
     Dates: start: 20100923, end: 20101018
  103. CARBIDOPA MONOHYDRATE/LEVODOPA (SINEMET DEPOT) [Concomitant]
     Dosage: 50MG/200MG
     Dates: start: 20101018, end: 20101201
  104. CARBIDOPA MONOHYDRATE/LEVODOPA (SINEMET DEPOT) [Concomitant]
     Dosage: 50MG/200MG: 1/2X2
     Dates: start: 20101201, end: 20121002
  105. PANTOPRAZOLE SODIUM SESQUIHYDRATE [Concomitant]
     Indication: PRODUCT USED FOR UNKNOWN INDICATION
     Dates: start: 20080527, end: 20110427
  106. PANTOPRAZOLE SODIUM SESQUIHYDRATE [Concomitant]
     Dates: start: 20091030, end: 20091030
  107. PANTOPRAZOLE SODIUM SESQUIHYDRATE [Concomitant]
     Dates: start: 20100216, end: 20100416
  108. PANTOPRAZOLE SODIUM SESQUIHYDRATE [Concomitant]
     Dates: start: 20100928
  109. PANTOPRAZOLE SODIUM SESQUIHYDRATE [Concomitant]
     Dates: start: 20071210, end: 20110427
  110. PANTOPRAZOLE SODIUM SESQUIHYDRATE [Concomitant]
     Dates: start: 20091030, end: 20100928
  111. TIOTROPIUM BROMIDE [Concomitant]
     Indication: PRODUCT USED FOR UNKNOWN INDICATION
     Dates: start: 20080527, end: 20120802
  112. TIOTROPIUM BROMIDE [Concomitant]
     Dates: start: 20100113, end: 20110427
  113. ENTACAPONE/CARBIDOPA/CARBIDOPA MONOHYDRATE/LEVODOPA (STALEVO) [Concomitant]
     Indication: PRODUCT USED FOR UNKNOWN INDICATION
     Dosage: 100MG/25MG/200MG
     Dates: start: 20071015, end: 20110805
  114. ENTACAPONE/CARBIDOPA/CARBIDOPA MONOHYDRATE/LEVODOPA (STALEVO) [Concomitant]
     Dosage: 100MG/25MG/200MG
     Dates: start: 20071210, end: 20110805
  115. TEMAZEPAM [Concomitant]
     Indication: PRODUCT USED FOR UNKNOWN INDICATION
     Dates: start: 20070509, end: 20071105
  116. TEMAZEPAM [Concomitant]
     Dates: start: 20071105, end: 20120802
  117. TEMAZEPAM [Concomitant]
     Dates: start: 20071117, end: 20080910
  118. PYRIDOXINE HCL/CYANOCOBALAMIN/THIAMINE NITRATE (TRINEURIN) [Concomitant]
     Indication: PRODUCT USED FOR UNKNOWN INDICATION
     Dates: start: 20100222, end: 20121003
  119. PYRIDOXINE HCL/CYANOCOBALAMIN/THIAMINE NITRATE (TRINEURIN) [Concomitant]
     Dosage: 1+0+0
     Dates: start: 20091027, end: 20110427
  120. PYRIDOXINE HCL/CYANOCOBALAMIN/THIAMINE NITRATE (TRINEURIN) [Concomitant]
     Dates: start: 20091030, end: 20100115
  121. PYRIDOXINE HCL/CYANOCOBALAMIN/THIAMINE NITRATE (TRINEURIN) [Concomitant]
     Dates: start: 20091112, end: 20100222
  122. TRIOBE [Concomitant]
     Indication: PRODUCT USED FOR UNKNOWN INDICATION
     Dates: start: 20121003
  123. ALFUZOSIN HCL (ALFUZOSIN HYDROCHLORID ORIFARM) [Concomitant]
     Dates: start: 20100222, end: 20120628
  124. PARACETAMOL (PANADOL FORTE) [Concomitant]
     Dates: start: 20080129, end: 20120802
  125. PARACETAMOL (PANADOL FORTE) [Concomitant]
     Dates: start: 20120802, end: 20121002
  126. PARACETAMOL (PANADOL FORTE) [Concomitant]
     Dates: start: 20121002
  127. QUETIAPINE FUMARATE (SEROQUEL PROLONG) [Concomitant]
     Indication: PRODUCT USED FOR UNKNOWN INDICATION
     Dosage: 0+0+1
     Dates: start: 20091021, end: 20091023
  128. QUETIAPINE FUMARATE (SEROQUEL PROLONG) [Concomitant]
     Dates: start: 20091023, end: 20110805
  129. QUETIAPINE FUMARATE (SEROQUEL PROLONG) [Concomitant]
     Dates: start: 20100916, end: 20110427
  130. QUETIAPINE FUMARATE (SEROQUEL PROLONG) [Concomitant]
     Dates: start: 20100222, end: 20110527
  131. QUETIAPINE FUMARATE (SEROQUEL PROLONG) [Concomitant]
     Dates: start: 20091030, end: 20091030
  132. QUETIAPINE FUMARATE (SEROQUEL PROLONG) [Concomitant]
     Dates: start: 20100630, end: 20110805
  133. QUETIAPINE FUMARATE (SEROQUEL PROLONG) [Concomitant]
     Dates: start: 20100614, end: 20100916

REACTIONS (15)
  - Death [Fatal]
  - Polyneuropathy [Unknown]
  - Fall [Unknown]
  - Parkinson^s disease [Unknown]
  - Paraesthesia [Unknown]
  - Joint range of motion decreased [Unknown]
  - Mobility decreased [Unknown]
  - Decubitus ulcer [Unknown]
  - Neck pain [Unknown]
  - Pain in extremity [Unknown]
  - Hallucination [Unknown]
  - Depression [Unknown]
  - General physical health deterioration [Unknown]
  - Incorrect route of drug administration [Unknown]
  - Aphasia [Unknown]
